FAERS Safety Report 11061063 (Version 3)
Quarter: 2015Q3

REPORT INFORMATION
  Report Type: Spontaneous
  Country: PL (occurrence: PL)
  Receive Date: 20150424
  Receipt Date: 20150703
  Transmission Date: 20151125
  Serious: Yes (Hospitalization, Other)
  Sender: FDA-Public Use
  Company Number: PL-AMGEN-POLSP2015038378

PATIENT
  Age: 81 Year
  Sex: Female
  Weight: 61 kg

DRUGS (18)
  1. PROLIA [Suspect]
     Active Substance: DENOSUMAB
     Indication: OSTEOPOROSIS
     Dosage: 60 MG/ML, Q6MO
     Route: 058
     Dates: start: 20120824, end: 20140829
  2. ROSUCARD [Concomitant]
  3. IPP                                /00661201/ [Concomitant]
     Dosage: UNK
  4. POLPRIL [Concomitant]
     Active Substance: RAMIPRIL
  5. CLEXANE [Concomitant]
     Active Substance: ENOXAPARIN SODIUM
     Dosage: UNK
  6. ZAHRON [Concomitant]
     Dosage: 10 MG, QD
  7. CONTIX                             /01263201/ [Concomitant]
     Dosage: 20 MG, QD
  8. BISOCARD [Concomitant]
     Active Substance: BISOPROLOL
  9. PLAVIX [Concomitant]
     Active Substance: CLOPIDOGREL BISULFATE
     Dosage: UNK
  10. INSPRA [Concomitant]
     Active Substance: EPLERENONE
     Dosage: 25 MG, QD
  11. AREPLEX [Concomitant]
     Dosage: 75 MG, QD
  12. VALSACOR [Concomitant]
     Active Substance: VALSARTAN
     Dosage: 80 MG, QD
  13. TRIACYT [Concomitant]
     Dosage: UNK UNK, BID
  14. CALPEROS                           /00944201/ [Concomitant]
     Indication: OSTEOPOROSIS
     Dosage: 0.5 UNK, UNK
     Route: 048
     Dates: start: 2011
  15. SIMVASTATIN. [Concomitant]
     Active Substance: SIMVASTATIN
     Indication: HYPERCHOLESTEROLAEMIA
     Dosage: UNK MG, QD
     Route: 048
     Dates: start: 2000
  16. DEVI [Concomitant]
     Indication: OSTEOPOROSIS
     Dosage: 4 DROPS ORALLY
     Route: 048
     Dates: start: 2012
  17. ASA [Concomitant]
     Active Substance: ASPIRIN
  18. CONCOR ASA [Concomitant]
     Dosage: 5/75 MG, QD

REACTIONS (14)
  - Mitral valve calcification [Unknown]
  - Hypertension [Unknown]
  - Mitral valve sclerosis [Unknown]
  - Coronary artery disease [Unknown]
  - Enzyme level increased [Unknown]
  - Cardiomyopathy [Unknown]
  - Cardiovascular disorder [Unknown]
  - Heart valve incompetence [Unknown]
  - Acute myocardial infarction [Recovered/Resolved]
  - Dyslipidaemia [Unknown]
  - Bundle branch block right [Unknown]
  - Cardiac failure [Unknown]
  - Rheumatoid arthritis [Unknown]
  - Platelet aggregation increased [Unknown]

NARRATIVE: CASE EVENT DATE: 20140830
